FAERS Safety Report 5167831-4 (Version None)
Quarter: 2006Q4

REPORT INFORMATION
  Report Type: 
  Country: None (occurrence: None)
  Receive Date: 20061130
  Receipt Date: 20061130
  Transmission Date: 20070319
  Serious: Yes (Other)
  Sender: FDA-Public Use
  Company Number: None

PATIENT
  Sex: Male
  Weight: 103.4201 kg

DRUGS (2)
  1. CLINDAMYCIN [Suspect]
     Indication: POSTOPERATIVE CARE
     Dosage: 4 TSP -20ML- QID PO
     Route: 048
     Dates: start: 20061031, end: 20061107
  2. CLINDAMYCIN [Suspect]
     Indication: UVULOPALATOPHARYNGOPLASTY
     Dosage: 4 TSP -20ML- QID PO
     Route: 048
     Dates: start: 20061031, end: 20061107

REACTIONS (2)
  - RASH [None]
  - URTICARIA [None]
